FAERS Safety Report 7865071-9 (Version None)
Quarter: 2011Q4

REPORT INFORMATION
  Report Type: 
  Country: None (occurrence: None)
  Receive Date: 20111028
  Receipt Date: 20101008
  Transmission Date: 20120403
  Serious: No
  Sender: FDA-Public Use
  Company Number: US-GLAXOSMITHKLINE-A0885671A

PATIENT
  Age: 54 Year
  Sex: Male

DRUGS (8)
  1. ADVAIR DISKUS 100/50 [Suspect]
     Indication: ASTHMA
     Route: 055
  2. TRAMADOL HCL [Concomitant]
  3. WARFARIN SODIUM [Concomitant]
  4. ALBUTEROL [Concomitant]
  5. CELEXA [Concomitant]
  6. HYDROCODONE BITARTRATE [Concomitant]
  7. CLONAZEPAM [Concomitant]
  8. SIMVASTATIN [Concomitant]

REACTIONS (2)
  - PRODUCT QUALITY ISSUE [None]
  - CHEST DISCOMFORT [None]
